FAERS Safety Report 6111772-2 (Version None)
Quarter: 2009Q1

REPORT INFORMATION
  Report Type: 
  Country: None (occurrence: None)
  Receive Date: 20090311
  Receipt Date: 20080530
  Transmission Date: 20090719
  Serious: No
  Sender: FDA-Public Use
  Company Number: US-TYCO HEALTHCARE/MALLINCKRODT-T200800930

PATIENT

DRUGS (10)
  1. RESTORIL [Suspect]
     Dates: start: 20080101
  2. LUNESTA [Suspect]
     Indication: INSOMNIA
     Dosage: 3 MG, QD (HS)
     Route: 048
     Dates: start: 20060101, end: 20070601
  3. LUNESTA [Suspect]
     Dosage: 6 MG, PRN
     Route: 048
     Dates: start: 20070601
  4. SEROQUEL [Concomitant]
  5. ASPIRIN [Concomitant]
  6. DIURETICS [Concomitant]
  7. POTASSIUM CHLORIDE [Concomitant]
  8. CALCIUM [Concomitant]
  9. NEXIUM [Concomitant]
  10. LIDODERM [Concomitant]

REACTIONS (2)
  - DRUG INEFFECTIVE [None]
  - WEIGHT INCREASED [None]
